FAERS Safety Report 4552023-X (Version None)
Quarter: 2005Q1

REPORT INFORMATION
  Report Type: 
  Country: None (occurrence: None)
  Receive Date: 20050112
  Receipt Date: 20050105
  Transmission Date: 20050727
  Serious: Yes (Hospitalization)
  Sender: FDA-Public Use
  Company Number: 05-004

PATIENT
  Age: 50 Year
  Sex: Male

DRUGS (4)
  1. ALEVE [Suspect]
     Indication: BACK PAIN
     Dosage: ORAL
     Route: 048
  2. ALEVE [Suspect]
     Indication: HEADACHE
     Dosage: ORAL
     Route: 048
  3. ALEVE [Suspect]
     Indication: MYALGIA
     Dosage: ORAL
     Route: 048
  4. ST. JOHN'S WORT (ST. JOHN^S WORT) [Concomitant]

REACTIONS (2)
  - BLOOD URINE PRESENT [None]
  - HAEMATOCHEZIA [None]
